FAERS Safety Report 8495881 (Version 2)
Quarter: 2012Q4

REPORT INFORMATION
  Report Type: 
  Country: CA (occurrence: CA)
  Receive Date: 20120405
  Receipt Date: 20120924
  Transmission Date: 20130627
  Serious: Yes (Hospitalization)
  Sender: FDA-Public Use
  Company Number: CA-JNJFOC-20120313399

PATIENT
  Age: 54 Year
  Sex: Female
  Weight: 57.5 kg

DRUGS (5)
  1. REMICADE [Suspect]
     Indication: CROHN^S DISEASE
     Route: 042
     Dates: start: 200604
  2. IMURAN [Concomitant]
     Route: 065
  3. VITAMIN B12 [Concomitant]
     Route: 065
  4. PREDNISONE [Concomitant]
     Dosage: tapering dose
     Route: 065
  5. FERROUS FUMERATE [Concomitant]
     Route: 065

REACTIONS (6)
  - Anastomotic stenosis [Unknown]
  - Vomiting [Unknown]
  - Anal abscess [Unknown]
  - Pain [Unknown]
  - Abdominal discomfort [Unknown]
  - Rash [Unknown]
